FAERS Safety Report 20069000 (Version 1)
Quarter: 2021Q4

REPORT INFORMATION
  Report Type: Spontaneous
  Country: US (occurrence: US)
  Receive Date: 20211115
  Receipt Date: 20211115
  Transmission Date: 20220303
  Serious: No
  Sender: FDA-Public Use
  Company Number: US-CELGENE-USA-20211101261

PATIENT
  Age: 61 Year
  Sex: Male
  Weight: 114.6 kg

DRUGS (1)
  1. ABRAXANE [Suspect]
     Active Substance: PACLITAXEL
     Indication: Neoplasm malignant
     Dosage: DOSE : 3;     FREQ : WEEKLY FOR THREE WEEKS AND ONE WEEK OFF PER 28 DAY CYCLE
     Route: 065
     Dates: start: 20210701, end: 20210729

REACTIONS (1)
  - Neutropenia [Unknown]

NARRATIVE: CASE EVENT DATE: 20210715
